FAERS Safety Report 8933842 (Version 1)
Quarter: 2012Q4

REPORT INFORMATION
  Report Type: 
  Country: AT (occurrence: AT)
  Receive Date: 20121129
  Receipt Date: 20121129
  Transmission Date: 20130627
  Serious: Yes (Life-Threatening)
  Sender: FDA-Public Use
  Company Number: AT-ROCHE-1160359

PATIENT

DRUGS (1)
  1. ALTEPLASE [Suspect]
     Indication: CEREBROVASCULAR ACCIDENT
     Route: 065

REACTIONS (3)
  - Hypersensitivity [Unknown]
  - Circulatory collapse [Unknown]
  - Shock [Unknown]
